FAERS Safety Report 20700552 (Version 1)
Quarter: 2022Q2

REPORT INFORMATION
  Report Type: Spontaneous
  Country: US (occurrence: US)
  Receive Date: 20220412
  Receipt Date: 20220412
  Transmission Date: 20220721
  Serious: Yes (Other)
  Sender: FDA-Public Use
  Company Number: US-RECKITT BENCKISER HEALTHCARE INT LIMITED-RB-087029-2022

PATIENT
  Sex: Female

DRUGS (1)
  1. CLEARASIL STUBBORN ACNE CONTROL 5IN1 EXFOLIATING WASH [Suspect]
     Active Substance: SALICYLIC ACID
     Indication: Product used for unknown indication
     Dosage: UNK
     Route: 061
     Dates: start: 202204

REACTIONS (2)
  - Foreign body in eye [Not Recovered/Not Resolved]
  - Eye pain [Not Recovered/Not Resolved]

NARRATIVE: CASE EVENT DATE: 20220401
